FAERS Safety Report 22250386 (Version 2)
Quarter: 2023Q2

REPORT INFORMATION
  Report Type: Spontaneous
  Country: GB (occurrence: GB)
  Receive Date: 20230425
  Receipt Date: 20230501
  Transmission Date: 20230722
  Serious: Yes (Other)
  Sender: FDA-Public Use
  Company Number: GB-MHRA-MED-202304121700317300-YSBRK

PATIENT

DRUGS (4)
  1. XCOPRI [Suspect]
     Active Substance: CENOBAMATE
     Indication: Partial seizures
     Dosage: 25MG ONCE A DAY AT NIGHT
     Route: 048
     Dates: start: 20230317, end: 20230412
  2. EPILIM [Concomitant]
     Active Substance: VALPROATE SODIUM
     Indication: Partial seizures
     Dosage: UNK
     Route: 065
  3. LACOSAMIDE [Concomitant]
     Active Substance: LACOSAMIDE
     Indication: Partial seizures
     Dosage: UNK
     Route: 065
  4. PERAMPANEL [Concomitant]
     Active Substance: PERAMPANEL
     Indication: Partial seizures
     Dosage: UNK
     Route: 065

REACTIONS (6)
  - Blister [Not Recovered/Not Resolved]
  - Chromaturia [Not Recovered/Not Resolved]
  - Contusion [Not Recovered/Not Resolved]
  - Rash [Not Recovered/Not Resolved]
  - Confusional state [Not Recovered/Not Resolved]
  - Rash pruritic [Not Recovered/Not Resolved]

NARRATIVE: CASE EVENT DATE: 20230331
